FAERS Safety Report 6691643-3 (Version None)
Quarter: 2010Q2

REPORT INFORMATION
  Report Type: 
  Country: None (occurrence: None)
  Receive Date: 20100422
  Receipt Date: 20090416
  Transmission Date: 20101027
  Serious: No
  Sender: FDA-Public Use
  Company Number: US-ASTRAZENECA-2009UW09620

PATIENT
  Age: 55 Year
  Sex: Female
  Weight: 66.2 kg

DRUGS (1)
  1. METOPROLOL SUCCINATE [Suspect]
     Indication: HEART RATE INCREASED
     Route: 048

REACTIONS (1)
  - HEART RATE INCREASED [None]
